FAERS Safety Report 8182216-4 (Version None)
Quarter: 2012Q1

REPORT INFORMATION
  Report Type: 
  Country: None (occurrence: None)
  Receive Date: 20120302
  Receipt Date: 20120224
  Transmission Date: 20120608
  Serious: Yes (Hospitalization, Other)
  Sender: FDA-Public Use
  Company Number: PHHY2012AU015659

PATIENT
  Age: 47 Year
  Sex: Female

DRUGS (4)
  1. METFORMIN SANDOZ [Suspect]
  2. JANUVIA [Concomitant]
  3. VERAPAMIL [Concomitant]
  4. LEVLEN ED [Concomitant]

REACTIONS (2)
  - SWELLING FACE [None]
  - ANGIOEDEMA [None]
